FAERS Safety Report 12771040 (Version 1)
Quarter: 2016Q3

REPORT INFORMATION
  Report Type: Report from Study
  Country: BR (occurrence: BR)
  Receive Date: 20160922
  Receipt Date: 20160922
  Transmission Date: 20161109
  Serious: Yes (Hospitalization)
  Sender: FDA-Public Use
  Company Number: BR-BIOGEN-2016BI00292968

PATIENT
  Age: 51 Year
  Sex: Female

DRUGS (3)
  1. AAS [Concomitant]
     Active Substance: ASPIRIN
     Indication: ANTICOAGULANT THERAPY
     Route: 065
  2. CLOPIDOGREL [Concomitant]
     Active Substance: CLOPIDOGREL BISULFATE
     Indication: ANTIPLATELET THERAPY
     Route: 065
  3. AVONEX [Suspect]
     Active Substance: INTERFERON BETA-1A
     Indication: MULTIPLE SCLEROSIS
     Route: 065
     Dates: start: 20050310

REACTIONS (12)
  - Back pain [Unknown]
  - Injection site haemorrhage [Unknown]
  - Fat tissue increased [Unknown]
  - Discomfort [Unknown]
  - Injection site discolouration [Unknown]
  - Coronary artery occlusion [Unknown]
  - Malaise [Unknown]
  - Fatigue [Unknown]
  - Blood cholesterol increased [Unknown]
  - Anxiety [Unknown]
  - Angina pectoris [Unknown]
  - Hypoaesthesia [Unknown]

NARRATIVE: CASE EVENT DATE: 20160329
